FAERS Safety Report 16283199 (Version 2)
Quarter: 2021Q1

REPORT INFORMATION
  Report Type: Spontaneous
  Country: US (occurrence: US)
  Receive Date: 20190507
  Receipt Date: 20210302
  Transmission Date: 20210419
  Serious: Yes (Other)
  Sender: FDA-Public Use
  Company Number: US-ASTRAZENECA-2019SE62586

PATIENT
  Age: 64 Year
  Sex: Male
  Weight: 105.2 kg

DRUGS (75)
  1. PRILOSEC [Suspect]
     Active Substance: OMEPRAZOLE MAGNESIUM
     Indication: GASTROOESOPHAGEAL REFLUX DISEASE
     Dosage: GENERIC
     Route: 065
     Dates: start: 2014
  2. PREVACID IV [Suspect]
     Active Substance: LANSOPRAZOLE
     Indication: GASTROOESOPHAGEAL REFLUX DISEASE
     Route: 065
     Dates: start: 1999, end: 2019
  3. DARBEPOETIN [Concomitant]
     Active Substance: DARBEPOETIN ALFA
  4. CALCITRIOL. [Concomitant]
     Active Substance: CALCITRIOL
  5. CARVEDILOL. [Concomitant]
     Active Substance: CARVEDILOL
  6. INSULIN [Concomitant]
     Active Substance: INSULIN NOS
     Indication: DIABETES MELLITUS
  7. METOPROLOL. [Concomitant]
     Active Substance: METOPROLOL
     Indication: HYPERTENSION
  8. AMOX TR?K CLV [Concomitant]
     Active Substance: AMOXICILLIN\CLAVULANATE POTASSIUM
  9. GLUCOSE [Concomitant]
     Active Substance: DEXTROSE
  10. VENOFER [Concomitant]
     Active Substance: IRON SUCROSE
  11. NEXIUM 24HR [Suspect]
     Active Substance: ESOMEPRAZOLE MAGNESIUM
     Indication: GASTROOESOPHAGEAL REFLUX DISEASE
     Route: 048
     Dates: start: 201403, end: 2019
  12. PRILOSEC [Suspect]
     Active Substance: OMEPRAZOLE MAGNESIUM
     Indication: GASTROOESOPHAGEAL REFLUX DISEASE
     Route: 048
     Dates: start: 198909, end: 201404
  13. PRILOSEC OTC [Suspect]
     Active Substance: OMEPRAZOLE MAGNESIUM
     Indication: GASTROOESOPHAGEAL REFLUX DISEASE
     Route: 048
     Dates: start: 2003, end: 2019
  14. VITAMIN D3 [Concomitant]
     Active Substance: CHOLECALCIFEROL
  15. PEPCID [Concomitant]
     Active Substance: FAMOTIDINE
  16. TUMS [Concomitant]
     Active Substance: CALCIUM CARBONATE
  17. OXYCODONE HYDROCHLORIDE. [Concomitant]
     Active Substance: OXYCODONE HYDROCHLORIDE
  18. AMBIEN [Concomitant]
     Active Substance: ZOLPIDEM TARTRATE
  19. HEPARIN [Concomitant]
     Active Substance: HEPARIN SODIUM
  20. PROTHROMBIN [Concomitant]
     Active Substance: PROTHROMBIN
  21. PRILOSEC [Suspect]
     Active Substance: OMEPRAZOLE MAGNESIUM
     Indication: GASTROOESOPHAGEAL REFLUX DISEASE
     Dosage: GENERIC
     Route: 065
     Dates: start: 2014
  22. PRILOSEC OTC [Suspect]
     Active Substance: OMEPRAZOLE MAGNESIUM
     Indication: GASTROOESOPHAGEAL REFLUX DISEASE
     Route: 048
     Dates: start: 2003, end: 2019
  23. FINASTERIDE. [Concomitant]
     Active Substance: FINASTERIDE
  24. NORCO [Concomitant]
     Active Substance: ACETAMINOPHEN\HYDROCODONE BITARTRATE
  25. ZANTAC [Concomitant]
     Active Substance: RANITIDINE HYDROCHLORIDE
  26. CENTRUM SILVER [Concomitant]
     Active Substance: MINERALS\VITAMINS
  27. COLOSTAZOL [Concomitant]
  28. CLONAZEPAM. [Concomitant]
     Active Substance: CLONAZEPAM
  29. POTASSIUM CHLORIDE. [Concomitant]
     Active Substance: POTASSIUM CHLORIDE
  30. VANCOMYCIN [Concomitant]
     Active Substance: VANCOMYCIN
  31. PREVACID IV [Suspect]
     Active Substance: LANSOPRAZOLE
     Indication: GASTROOESOPHAGEAL REFLUX DISEASE
     Route: 065
     Dates: start: 1999, end: 2019
  32. PREVACID 24 HR [Suspect]
     Active Substance: LANSOPRAZOLE
     Route: 065
  33. DEXILANT [Suspect]
     Active Substance: DEXLANSOPRAZOLE
     Indication: GASTROOESOPHAGEAL REFLUX DISEASE
     Route: 065
     Dates: start: 200901
  34. MIRALAX [Concomitant]
     Active Substance: POLYETHYLENE GLYCOL 3350
  35. PRAVASTATIN SODIUM. [Concomitant]
     Active Substance: PRAVASTATIN SODIUM
  36. COUMADIN [Concomitant]
     Active Substance: WARFARIN SODIUM
  37. QUINIDINE SULFATE. [Concomitant]
     Active Substance: QUINIDINE SULFATE
  38. FLONASE [Concomitant]
     Active Substance: FLUTICASONE PROPIONATE
  39. SPIRONOLACTONE. [Concomitant]
     Active Substance: SPIRONOLACTONE
  40. NEXIUM [Suspect]
     Active Substance: ESOMEPRAZOLE MAGNESIUM
     Indication: GASTROOESOPHAGEAL REFLUX DISEASE
     Route: 048
     Dates: start: 200102, end: 2019
  41. PREVACID [Suspect]
     Active Substance: LANSOPRAZOLE
     Indication: GASTROOESOPHAGEAL REFLUX DISEASE
     Route: 065
     Dates: start: 1999, end: 2019
  42. PREVACID [Suspect]
     Active Substance: LANSOPRAZOLE
     Indication: GASTROOESOPHAGEAL REFLUX DISEASE
     Route: 065
     Dates: start: 1999, end: 2019
  43. METOLAZONE. [Concomitant]
     Active Substance: METOLAZONE
  44. FUROSEMIDE. [Concomitant]
     Active Substance: FUROSEMIDE
  45. ALLOPURINOL. [Concomitant]
     Active Substance: ALLOPURINOL
     Indication: GOUT
  46. OXYCODONE?ACETAMINOPHEN [Concomitant]
     Active Substance: ACETAMINOPHEN\OXYCODONE HYDROCHLORIDE
  47. SULFAMETHOXAZOLE/ TMP [Concomitant]
  48. CELEXA [Concomitant]
     Active Substance: CITALOPRAM HYDROBROMIDE
  49. NEXIUM 24HR [Suspect]
     Active Substance: ESOMEPRAZOLE MAGNESIUM
     Indication: GASTROOESOPHAGEAL REFLUX DISEASE
     Route: 048
     Dates: start: 201403, end: 2019
  50. NEXIUM I.V. [Suspect]
     Active Substance: ESOMEPRAZOLE SODIUM
     Indication: GASTROOESOPHAGEAL REFLUX DISEASE
     Route: 042
     Dates: start: 200102, end: 2019
  51. PRILOSEC [Suspect]
     Active Substance: OMEPRAZOLE MAGNESIUM
     Indication: GASTROOESOPHAGEAL REFLUX DISEASE
     Route: 048
     Dates: start: 198909, end: 201404
  52. DEXILANT [Suspect]
     Active Substance: DEXLANSOPRAZOLE
     Indication: GASTROOESOPHAGEAL REFLUX DISEASE
     Route: 065
     Dates: start: 200901
  53. LOSARTAN. [Concomitant]
     Active Substance: LOSARTAN
     Indication: BLOOD PRESSURE MEASUREMENT
  54. ALKA?SELTZER [Concomitant]
     Active Substance: ANHYDROUS CITRIC ACID\ASPIRIN\SODIUM BICARBONATE
  55. FERRITIN [Concomitant]
     Active Substance: FERRITIN
  56. ASPIRIN. [Concomitant]
     Active Substance: ASPIRIN
  57. ESCITALOPRAM [Concomitant]
     Active Substance: ESCITALOPRAM OXALATE
  58. RENVELA [Concomitant]
     Active Substance: SEVELAMER CARBONATE
  59. LANCET [Concomitant]
  60. RANITIDINE. [Concomitant]
     Active Substance: RANITIDINE
  61. ROLAIDS [Concomitant]
     Active Substance: CALCIUM CARBONATE\MAGNESIUM HYDROXIDE
  62. CIALIS [Concomitant]
     Active Substance: TADALAFIL
  63. XANAX [Concomitant]
     Active Substance: ALPRAZOLAM
  64. NITROGLYCERIN. [Concomitant]
     Active Substance: NITROGLYCERIN
  65. NEXIUM [Suspect]
     Active Substance: ESOMEPRAZOLE MAGNESIUM
     Indication: GASTROOESOPHAGEAL REFLUX DISEASE
     Route: 048
     Dates: start: 200102, end: 2019
  66. NEXIUM I.V. [Suspect]
     Active Substance: ESOMEPRAZOLE SODIUM
     Indication: GASTROOESOPHAGEAL REFLUX DISEASE
     Route: 042
     Dates: start: 200102, end: 2019
  67. POTASSIUM [Concomitant]
     Active Substance: POTASSIUM
  68. GLIPIZIDE. [Concomitant]
     Active Substance: GLIPIZIDE
  69. LEVOFLOXACIN. [Concomitant]
     Active Substance: LEVOFLOXACIN
     Indication: INFECTION
  70. ATORVASTATIN [Concomitant]
     Active Substance: ATORVASTATIN
     Indication: BLOOD CHOLESTEROL INCREASED
  71. MILK OF MAGNESIA [Concomitant]
     Active Substance: MAGNESIUM HYDROXIDE
  72. COMBIVENT [Concomitant]
     Active Substance: ALBUTEROL SULFATE\IPRATROPIUM BROMIDE
  73. CIPROFLOXACIN. [Concomitant]
     Active Substance: CIPROFLOXACIN
  74. VIAGRA [Concomitant]
     Active Substance: SILDENAFIL CITRATE
  75. EPOGEN [Concomitant]
     Active Substance: ERYTHROPOIETIN

REACTIONS (6)
  - Chronic kidney disease [Not Recovered/Not Resolved]
  - Nephrogenic anaemia [Unknown]
  - End stage renal disease [Not Recovered/Not Resolved]
  - Acute kidney injury [Not Recovered/Not Resolved]
  - Renal failure [Unknown]
  - Hyperparathyroidism secondary [Unknown]

NARRATIVE: CASE EVENT DATE: 2010
